FAERS Safety Report 14419557 (Version 1)
Quarter: 2018Q1

REPORT INFORMATION
  Report Type: Spontaneous
  Country: US (occurrence: US)
  Receive Date: 20180120
  Receipt Date: 20180120
  Transmission Date: 20180509
  Serious: No
  Sender: FDA-Public Use
  Company Number: None

PATIENT
  Age: 55 Year
  Sex: Female

DRUGS (1)
  1. CAPECITABINE TAB 500 MG BER [Suspect]
     Active Substance: CAPECITABINE

REACTIONS (4)
  - Neuralgia [None]
  - Therapy non-responder [None]
  - Dry skin [None]
  - Skin tightness [None]

NARRATIVE: CASE EVENT DATE: 20180101
